FAERS Safety Report 8196077 (Version 2)
Quarter: 2013Q1

REPORT INFORMATION
  Report Type: Spontaneous
  Country: FR (occurrence: FR)
  Receive Date: 20111024
  Receipt Date: 20130329
  Transmission Date: 20140127
  Serious: Yes (Death)
  Sender: FDA-Public Use
  Company Number: FR-JNJFOC-20111008347

PATIENT
  Sex: Female

DRUGS (7)
  1. DOXORUBICIN HYDROCHLORIDE [Suspect]
     Indication: SARCOMA UTERUS
     Route: 042
  2. IFOSFAMIDE [Suspect]
     Indication: SARCOMA UTERUS
     Route: 065
  3. IFOSFAMIDE [Suspect]
     Indication: SARCOMA UTERUS
     Route: 065
  4. MESNA [Suspect]
     Indication: SARCOMA UTERUS
     Route: 065
  5. CISPLATIN [Suspect]
     Indication: SARCOMA UTERUS
     Route: 065
  6. CISPLATIN [Suspect]
     Indication: SARCOMA UTERUS
     Route: 065
  7. LENOGRASTIM [Suspect]
     Indication: SARCOMA UTERUS
     Route: 065

REACTIONS (1)
  - Febrile neutropenia [Fatal]
